FAERS Safety Report 12658987 (Version 1)
Quarter: 2016Q3

REPORT INFORMATION
  Report Type: Spontaneous
  Country: US (occurrence: US)
  Receive Date: 20160816
  Receipt Date: 20160816
  Transmission Date: 20161109
  Serious: No
  Sender: FDA-Public Use
  Company Number: US-G+W LABS-GW2016US000081

PATIENT

DRUGS (1)
  1. MOMETASONE FUROATE. [Suspect]
     Active Substance: MOMETASONE FUROATE
     Indication: ECZEMA
     Dosage: UNK
     Route: 061
     Dates: start: 20160728, end: 20160803

REACTIONS (6)
  - Dizziness [Recovered/Resolved]
  - Off label use [Recovered/Resolved]
  - Abdominal pain upper [Recovered/Resolved]
  - Dizziness postural [Recovered/Resolved]
  - Nausea [Recovered/Resolved]
  - Influenza like illness [None]

NARRATIVE: CASE EVENT DATE: 20160728
